FAERS Safety Report 8733613 (Version 3)
Quarter: 2012Q4

REPORT INFORMATION
  Report Type: 
  Country: US (occurrence: US)
  Receive Date: 20120821
  Receipt Date: 20120831
  Transmission Date: 20130627
  Serious: Yes (Death)
  Sender: FDA-Public Use
  Company Number: US-PFIZER INC-2012199765

PATIENT
  Age: 63 Year
  Sex: Male

DRUGS (2)
  1. CAMPTOSAR [Suspect]
     Indication: COLON CANCER
     Dosage: 200 mg, UNK
     Dates: start: 20120710
  2. CAMPTOSAR [Suspect]
     Dosage: 100 mg/m2, UNK
     Route: 042

REACTIONS (3)
  - Disease progression [Fatal]
  - Colon cancer metastatic [Fatal]
  - Renal failure [Fatal]
